FAERS Safety Report 16057027 (Version 1)
Quarter: 2019Q2

REPORT INFORMATION
  Report Type: Spontaneous
  Country: US (occurrence: US)
  Receive Date: 20190311
  Receipt Date: 20190311
  Transmission Date: 20190711
  Serious: Yes (Other)
  Sender: FDA-Public Use
  Company Number: None

PATIENT
  Age: 56 Year
  Sex: Female
  Weight: 100.8 kg

DRUGS (2)
  1. VITAMIN D NOS [Concomitant]
     Active Substance: VITAMIN D NOS
  2. CEPHALEXIN. [Suspect]
     Active Substance: CEPHALEXIN
     Indication: KIDNEY INFECTION
     Dosage: ?          QUANTITY:40 TABLET(S);?
     Route: 048
     Dates: start: 20190208, end: 20190215

REACTIONS (4)
  - Product contamination microbial [None]
  - Malaise [None]
  - Therapeutic product effect decreased [None]
  - Infection [None]

NARRATIVE: CASE EVENT DATE: 20190208
